FAERS Safety Report 12133363 (Version 1)
Quarter: 2016Q1

REPORT INFORMATION
  Report Type: Spontaneous
  Country: AR (occurrence: AR)
  Receive Date: 20160301
  Receipt Date: 20160301
  Transmission Date: 20160526
  Serious: Yes (Death, Hospitalization, Other)
  Sender: FDA-Public Use
  Company Number: AR-PFIZER INC-2016083961

PATIENT
  Age: 70 Year
  Sex: Male

DRUGS (1)
  1. SUTENT [Suspect]
     Active Substance: SUNITINIB MALATE
     Indication: METASTATIC RENAL CELL CARCINOMA
     Dosage: 50 MG, CYCLIC (4 WEEKS ON/2 WEEKS OFF)
     Dates: start: 20150727, end: 201601

REACTIONS (6)
  - Metastatic renal cell carcinoma [Fatal]
  - General physical health deterioration [Unknown]
  - Oral mucosal blistering [Recovered/Resolved]
  - Coma [Unknown]
  - Pain [Unknown]
  - Disease progression [Fatal]

NARRATIVE: CASE EVENT DATE: 201601
